FAERS Safety Report 6170497-8 (Version None)
Quarter: 2009Q2

REPORT INFORMATION
  Report Type: 
  Country: None (occurrence: None)
  Receive Date: 20090427
  Receipt Date: 20090427
  Transmission Date: 20091009
  Serious: Yes (Life-Threatening)
  Sender: FDA-Public Use
  Company Number: None

PATIENT
  Age: 51 Year
  Sex: Male
  Weight: 106 kg

DRUGS (4)
  1. CEFAZOLIN [Suspect]
     Indication: PROPHYLAXIS AGAINST TRANSPLANT REJECTION
     Dosage: 1 GM IV X 1
     Route: 042
     Dates: start: 20081226
  2. TOBRAMYCIN [Concomitant]
  3. CISATRACURIUM [Concomitant]
  4. FENTANYL [Concomitant]

REACTIONS (1)
  - ANAPHYLACTIC REACTION [None]
